FAERS Safety Report 5191359-9 (Version None)
Quarter: 2006Q4

REPORT INFORMATION
  Report Type: 
  Country: None (occurrence: None)
  Receive Date: 20061219
  Receipt Date: 20061219
  Transmission Date: 20070319
  Serious: Yes (Hospitalization)
  Sender: FDA-Public Use
  Company Number: None

PATIENT
  Sex: Male
  Weight: 84.8 kg

DRUGS (2)
  1. GM CSF [Suspect]
     Indication: PROSTATE CANCER
     Dosage: 250MG/M2   DAYS 1-14/Q28DAYS   INJECTION
     Dates: start: 20061127, end: 20061207
  2. STEROIDS [Concomitant]

REACTIONS (2)
  - BRAIN NEOPLASM [None]
  - SPEECH DISORDER [None]
